FAERS Safety Report 8462282-9 (Version None)
Quarter: 2012Q2

REPORT INFORMATION
  Report Type: 
  Country: None (occurrence: None)
  Receive Date: 20120619
  Receipt Date: 20120619
  Transmission Date: 20120825
  Serious: Yes (Hospitalization)
  Sender: FDA-Public Use
  Company Number: None

PATIENT
  Age: 32 Year
  Sex: Female
  Weight: 68.0396 kg

DRUGS (7)
  1. PROPYLENE GLYCOL [Concomitant]
  2. PROTONIX [Concomitant]
  3. ADVAIR DISKUS 100/50 [Concomitant]
  4. MIRENA [Suspect]
     Indication: MENORRHAGIA
     Dosage: LEVONORGESTREL DAILY INTRA-UTERINE
     Route: 015
     Dates: start: 20111024, end: 20120518
  5. MIRENA [Suspect]
     Indication: ENDOMETRIOSIS
     Dosage: LEVONORGESTREL DAILY INTRA-UTERINE
     Route: 015
     Dates: start: 20111024, end: 20120518
  6. AZELEX [Concomitant]
  7. RHINOCORT [Concomitant]

REACTIONS (2)
  - MEDICAL DEVICE COMPLICATION [None]
  - UTERINE PERFORATION [None]
